FAERS Safety Report 17834512 (Version 1)
Quarter: 2020Q2

REPORT INFORMATION
  Report Type: Spontaneous
  Country: US (occurrence: US)
  Receive Date: 20200527
  Receipt Date: 20200527
  Transmission Date: 20200714
  Serious: Yes (Hospitalization)
  Sender: FDA-Public Use
  Company Number: None

PATIENT
  Age: 66 Year
  Sex: Female

DRUGS (2)
  1. NO DRUG NAME [Concomitant]
  2. VITAMIN D3 [Suspect]
     Active Substance: CHOLECALCIFEROL
     Indication: VITAMIN D DEFICIENCY
     Dosage: ?          OTHER STRENGTH:50,000IU;OTHER DOSE:50,000 IU;?
     Route: 048
     Dates: start: 20180809

REACTIONS (1)
  - Cholecystitis acute [None]
